FAERS Safety Report 7120968-2 (Version None)
Quarter: 2010Q4

REPORT INFORMATION
  Report Type: 
  Country: None (occurrence: None)
  Receive Date: 20101124
  Receipt Date: 20101111
  Transmission Date: 20110411
  Serious: Yes (Death, Other)
  Sender: FDA-Public Use
  Company Number: JP-SANOFI-AVENTIS-2010SA071046

PATIENT
  Age: 62 Year
  Sex: Female
  Weight: 50 kg

DRUGS (14)
  1. FLUDARA [Suspect]
     Dosage: DAYS 1-3 (FC REGIMEN)
     Route: 065
     Dates: start: 20080501
  2. ANTI-THYMOCYTE GLOBULIN NOS [Suspect]
     Indication: CHRONIC GRAFT VERSUS HOST DISEASE
     Dosage: ON DAY 1 (CHOP REGIMEN)
     Route: 042
     Dates: start: 20090821, end: 20090821
  3. BUSULFAN [Concomitant]
     Dosage: ON DAY 1 (CHOP REGIMEN)
     Dates: start: 20080501
  4. THERAPEUTIC RADIOPHARMACEUTICALS [Concomitant]
     Dosage: ON DAY 1 (CHOP REGIMEN)
     Dates: start: 20080501
  5. METHYLPREDNISOLONE SODIUM SUCCINATE [Concomitant]
     Dosage: DAYS 1-5 (CHOP REGIMEN)
     Dates: start: 20090821, end: 20090823
  6. VANCOMYCIN HYDROCHLORIDE [Concomitant]
     Dosage: REDUCED DOSE
     Dates: end: 20090908
  7. MYCOPHENOLATE MOFETIL [Concomitant]
     Dates: end: 20090908
  8. ZOLEDRONIC ACID [Concomitant]
     Dates: end: 20090821
  9. FUROSEMIDE [Concomitant]
     Dates: end: 20090909
  10. PREDNISOLONE [Concomitant]
     Dates: end: 20090909
  11. GANCICLOVIR [Concomitant]
     Dates: end: 20090908
  12. VORICONAZOLE [Concomitant]
     Dates: end: 20090906
  13. URSODIOL [Concomitant]
     Dates: end: 20090907
  14. BEZAFIBRATE [Concomitant]
     Dates: end: 20090906

REACTIONS (3)
  - BACTERAEMIA [None]
  - DEEP VEIN THROMBOSIS [None]
  - STAPHYLOCOCCAL BACTERAEMIA [None]
